FAERS Safety Report 23348735 (Version 1)
Quarter: 2023Q4

REPORT INFORMATION
  Report Type: Spontaneous
  Country: US (occurrence: US)
  Receive Date: 20231229
  Receipt Date: 20231229
  Transmission Date: 20240109
  Serious: No
  Sender: FDA-Public Use
  Company Number: US-AMGEN-USASP2023227941

PATIENT
  Age: 78 Year
  Sex: Female

DRUGS (1)
  1. NPLATE [Suspect]
     Active Substance: ROMIPLOSTIM
     Indication: Immune thrombocytopenia
     Dosage: 85 MICROGRAM, QWK
     Route: 065
     Dates: start: 202307

REACTIONS (1)
  - Platelet count abnormal [Unknown]

NARRATIVE: CASE EVENT DATE: 20231101
